FAERS Safety Report 5801961-6 (Version None)
Quarter: 2008Q3

REPORT INFORMATION
  Report Type: 
  Country: None (occurrence: None)
  Receive Date: 20080702
  Receipt Date: 20080624
  Transmission Date: 20090109
  Serious: Yes (Death)
  Sender: FDA-Public Use
  Company Number: 2008-00584

PATIENT

DRUGS (5)
  1. VELCADE [Suspect]
     Indication: MULTIPLE MYELOMA
     Dosage: 2.10 MG,
     Dates: start: 20080201, end: 20080208
  2. BACTRIM [Concomitant]
  3. FOLIC ACID [Concomitant]
  4. DEXAMETHASONE [Concomitant]
  5. ACYCLOVIR [Concomitant]

REACTIONS (2)
  - BRONCHOPNEUMONIA [None]
  - SEPTIC SHOCK [None]
